FAERS Safety Report 10560261 (Version 2)
Quarter: 2015Q2

REPORT INFORMATION
  Report Type: Report from Study
  Country: TR (occurrence: TR)
  Receive Date: 20141103
  Receipt Date: 20150521
  Transmission Date: 20150821
  Serious: Yes (Death, Hospitalization)
  Sender: FDA-Public Use
  Company Number: TR-NOVOPROD-427278

PATIENT
  Sex: Male
  Weight: 1 kg

DRUGS (1)
  1. NOVORAPID [Suspect]
     Active Substance: INSULIN ASPART
     Indication: GESTATIONAL DIABETES
     Dosage: 12 IU, QD
     Route: 064
     Dates: start: 20140519, end: 20140702

REACTIONS (3)
  - Foetal exposure during pregnancy [Recovered/Resolved]
  - Immature respiratory system [Fatal]
  - Premature baby [Fatal]

NARRATIVE: CASE EVENT DATE: 20140519
